FAERS Safety Report 9456664 (Version 1)
Quarter: 2013Q3

REPORT INFORMATION
  Report Type: Spontaneous
  Country: AU (occurrence: AU)
  Receive Date: 20130813
  Receipt Date: 20130813
  Transmission Date: 20140515
  Serious: Yes (Death)
  Sender: FDA-Public Use
  Company Number: AU-PFIZER INC-2013232023

PATIENT
  Age: 63 Year
  Sex: Male
  Weight: 89 kg

DRUGS (9)
  1. ALDACTONE [Suspect]
     Indication: ASCITES
     Dosage: 50 MG, 1X/DAY
     Dates: end: 19981106
  2. IRINOTECAN HCL [Suspect]
     Indication: NEOPLASM MALIGNANT
     Dosage: 1 DF, 1X/DAY
     Route: 042
     Dates: start: 19981007, end: 19981029
  3. METOCLOPRAMIDE [Suspect]
     Dosage: UNK
     Dates: end: 19981107
  4. VANCOMYCIN HCL [Suspect]
     Dosage: UNK
     Dates: end: 19981107
  5. CEFEPIME HCL [Suspect]
     Dosage: UNK
     Dates: end: 19981106
  6. NYSTATIN [Suspect]
     Dosage: UNK
     Dates: end: 19981108
  7. MEROPENEM [Suspect]
     Dosage: UNK
     Dates: end: 19981110
  8. FRUSEMIDE [Suspect]
     Dosage: UNK
     Dates: end: 19981108
  9. LOPERAMIDE [Suspect]
     Indication: DIARRHOEA
     Dosage: 24 MG, 1X/DAY
     Route: 048
     Dates: start: 19981022, end: 19981107

REACTIONS (7)
  - Dehydration [Fatal]
  - Pneumonia [Fatal]
  - Diarrhoea [Fatal]
  - Orthostatic hypotension [Fatal]
  - Weight decreased [Fatal]
  - Renal failure acute [Fatal]
  - Hypocalcaemia [Fatal]
